FAERS Safety Report 8185587-8 (Version None)
Quarter: 2012Q1

REPORT INFORMATION
  Report Type: 
  Country: None (occurrence: None)
  Receive Date: 20120305
  Receipt Date: 20120226
  Transmission Date: 20120608
  Serious: Yes (Other)
  Sender: FDA-Public Use
  Company Number: PHHY2012MX016749

PATIENT
  Sex: Male

DRUGS (3)
  1. TEGRETOL [Suspect]
     Indication: EPILEPSY
     Dosage: 400 MG, BID
     Dates: start: 19860101
  2. CARBOLIT [Concomitant]
     Dosage: UNK
     Dates: start: 20120201
  3. ALDOL [Concomitant]
     Dosage: UNK
     Dates: start: 20060201

REACTIONS (2)
  - ANKLE FRACTURE [None]
  - BRONCHITIS [None]
